FAERS Safety Report 20932962 (Version 1)
Quarter: 2022Q2

REPORT INFORMATION
  Report Type: Report from Study
  Country: IE (occurrence: IE)
  Receive Date: 20220608
  Receipt Date: 20220608
  Transmission Date: 20220720
  Serious: No
  Sender: FDA-Public Use
  Company Number: IE-AMGEN-IRLSL2022072574

PATIENT
  Age: 61 Year
  Sex: Male

DRUGS (2)
  1. NEULASTA [Suspect]
     Active Substance: PEGFILGRASTIM
     Indication: Product used for unknown indication
     Dosage: 6 MILLIGRAM AS PER PRESCRIPTION
     Route: 058
     Dates: start: 20220403
  2. NEULASTA [Suspect]
     Active Substance: PEGFILGRASTIM
     Dosage: 6 MILLIGRAM AS PER PRESCRIPTION
     Route: 058

REACTIONS (1)
  - Device physical property issue [Recovered/Resolved]

NARRATIVE: CASE EVENT DATE: 20220423
